FAERS Safety Report 9342531 (Version 2)
Quarter: 2013Q3

REPORT INFORMATION
  Report Type: Spontaneous
  Country: FI (occurrence: FI)
  Receive Date: 20130611
  Receipt Date: 20130701
  Transmission Date: 20140515
  Serious: Yes (Other)
  Sender: FDA-Public Use
  Company Number: FI-ELI_LILLY_AND_COMPANY-FI201305009545

PATIENT
  Age: 67 Year
  Sex: Female

DRUGS (5)
  1. ZYPADHERA [Suspect]
     Indication: SCHIZOPHRENIA
     Dosage: 210 MG, UNK
     Route: 030
     Dates: start: 20130404, end: 20130528
  2. PERATSIN [Concomitant]
     Indication: SCHIZOPHRENIA
     Dosage: 12 MG, UNK
     Route: 048
     Dates: start: 20121231
  3. PERATSIN [Concomitant]
     Dosage: 8 MG, QD
  4. TEMESTA [Concomitant]
     Dosage: 1 MG, UNK
     Route: 048
  5. THYROXIN [Concomitant]
     Dosage: 0.125 MG, UNK
     Route: 048

REACTIONS (14)
  - Aneurysm [Unknown]
  - Insomnia [Recovered/Resolved]
  - Malaise [Recovered/Resolved]
  - Restless legs syndrome [Recovered/Resolved]
  - Dizziness [Recovered/Resolved]
  - Hypertension [Unknown]
  - Drug effect increased [Unknown]
  - Dysarthria [Recovered/Resolved]
  - Tongue paralysis [Recovered/Resolved]
  - Tremor [Recovered/Resolved]
  - Dysphemia [Recovered/Resolved]
  - Psychomotor hyperactivity [Recovered/Resolved]
  - Confusional state [Recovered/Resolved]
  - Memory impairment [Recovered/Resolved]
